FAERS Safety Report 4807587-5 (Version None)
Quarter: 2005Q4

REPORT INFORMATION
  Report Type: 
  Country: None (occurrence: None)
  Receive Date: 20051020
  Receipt Date: 20051004
  Transmission Date: 20060501
  Serious: Yes (Hospitalization)
  Sender: FDA-Public Use
  Company Number: 8012483

PATIENT
  Age: 9 Year
  Sex: Male

DRUGS (2)
  1. METHYLPHENIDATE HCL [Suspect]
     Indication: ATTENTION DEFICIT/HYPERACTIVITY DISORDER
     Dosage: 15 MG 3/D
  2. RISPERIDONE [Suspect]
     Dosage: 1.5 MG 3/D

REACTIONS (3)
  - DYSTONIA [None]
  - MUSCULOSKELETAL STIFFNESS [None]
  - PHYSICAL ASSAULT [None]
